APPROVED DRUG PRODUCT: MINOCYCLINE HYDROCHLORIDE
Active Ingredient: MINOCYCLINE HYDROCHLORIDE
Strength: EQ 135MG BASE
Dosage Form/Route: TABLET, EXTENDED RELEASE;ORAL
Application: A090024 | Product #003
Applicant: IMPAX LABORATORIES INC
Approved: Feb 3, 2009 | RLD: No | RS: No | Type: DISCN